FAERS Safety Report 5757488-3 (Version None)
Quarter: 2008Q2

REPORT INFORMATION
  Report Type: 
  Country: None (occurrence: None)
  Receive Date: 20080603
  Receipt Date: 20080526
  Transmission Date: 20081010
  Serious: Yes (Other)
  Sender: FDA-Public Use
  Company Number: CA-BOEHRINGER INGELHEIM GMBH, GERMANY-2008-DE-03043GD

PATIENT
  Sex: Male

DRUGS (9)
  1. NEVIRAPINE [Suspect]
     Indication: HIV INFECTION
  2. DIDANOSINE [Suspect]
     Indication: HIV INFECTION
  3. LOPINAVIR AND RITONAVIR [Suspect]
     Indication: HIV INFECTION
  4. STAVUDINE [Suspect]
     Indication: HIV INFECTION
     Dates: end: 20020101
  5. TENOFOVIR [Suspect]
     Indication: HIV INFECTION
     Dates: start: 20020101
  6. MINOCYCLINE HCL [Suspect]
     Indication: ACNE
     Dates: start: 20010307, end: 20010901
  7. MINOCYCLINE HCL [Suspect]
     Dates: start: 20020302, end: 20020902
  8. TETRACYCLINE [Suspect]
     Indication: ACNE
     Dates: start: 20021101, end: 20021118
  9. ALUMINIUM HYDROXIDE/MAGNESIUM HYDROXIDE [Concomitant]
     Indication: GASTROOESOPHAGEAL REFLUX DISEASE

REACTIONS (7)
  - ACNE [None]
  - DRUG INTERACTION [None]
  - HYPERCHOLESTEROLAEMIA [None]
  - HYPERTRIGLYCERIDAEMIA [None]
  - IMMUNE RECONSTITUTION SYNDROME [None]
  - LIPOATROPHY [None]
  - NEUROPATHY PERIPHERAL [None]
